FAERS Safety Report 25676676 (Version 1)
Quarter: 2025Q3

REPORT INFORMATION
  Report Type: Spontaneous
  Country: US (occurrence: None)
  Receive Date: 20250812
  Receipt Date: 20250812
  Transmission Date: 20251021
  Serious: Yes (Hospitalization, Disabling)
  Sender: FDA-CTU
  Company Number: None

PATIENT
  Age: 70 Year
  Sex: Female

DRUGS (1)
  1. GADOLINIUM [Suspect]
     Active Substance: GADOLINIUM

REACTIONS (11)
  - Contrast media reaction [None]
  - Oropharyngeal pain [None]
  - Sensitive skin [None]
  - Pruritus [None]
  - Dysstasia [None]
  - Dizziness [None]
  - Brain fog [None]
  - Diplopia [None]
  - Balance disorder [None]
  - Walking aid user [None]
  - Quality of life decreased [None]

NARRATIVE: CASE EVENT DATE: 20240831
